FAERS Safety Report 10245354 (Version 1)
Quarter: 2014Q2

REPORT INFORMATION
  Report Type: Spontaneous
  Country: US (occurrence: US)
  Receive Date: 20140618
  Receipt Date: 20140618
  Transmission Date: 20141212
  Serious: Yes (Other)
  Sender: FDA-Public Use
  Company Number: US-ROCHE-1420264

PATIENT
  Age: 61 Year
  Sex: Female

DRUGS (9)
  1. XOLAIR [Suspect]
     Indication: ASTHMA
     Route: 058
     Dates: start: 201308
  2. DULERA [Concomitant]
     Route: 055
  3. LOVAZA [Concomitant]
  4. NEXIUM [Concomitant]
  5. ACCOLATE [Concomitant]
  6. ZYRTEC [Concomitant]
  7. SENNA [Concomitant]
  8. XOPENEX [Concomitant]
  9. QVAR [Concomitant]
     Route: 055

REACTIONS (1)
  - VIIth nerve paralysis [Recovering/Resolving]
